FAERS Safety Report 15914304 (Version 1)
Quarter: 2019Q1

REPORT INFORMATION
  Report Type: Spontaneous
  Country: US (occurrence: US)
  Receive Date: 20190111
  Receipt Date: 20190111
  Transmission Date: 20190417
  Serious: No
  Sender: FDA-Public Use
  Company Number: None

PATIENT
  Age: 72 Year
  Sex: Female
  Weight: 50.35 kg

DRUGS (3)
  1. YUVAFEM [Suspect]
     Active Substance: ESTRADIOL HEMIHYDRATE
     Indication: ATROPHIC VULVOVAGINITIS
     Dosage: ?          QUANTITY:10 UG MICROGRAM(S);OTHER FREQUENCY:TWICE WEEK/BEDTIME;?
     Route: 067
     Dates: start: 201807
  2. YUVAFEM [Suspect]
     Active Substance: ESTRADIOL HEMIHYDRATE
     Indication: DYSPAREUNIA
     Dosage: ?          QUANTITY:10 UG MICROGRAM(S);OTHER FREQUENCY:TWICE WEEK/BEDTIME;?
     Route: 067
     Dates: start: 201807
  3. VITAMIN D [Concomitant]
     Active Substance: CHOLECALCIFEROL

REACTIONS (4)
  - Vulvovaginal dryness [None]
  - Vulvovaginal pruritus [None]
  - Dyspareunia [None]
  - Product substitution issue [None]

NARRATIVE: CASE EVENT DATE: 20181201
